FAERS Safety Report 5805808-3 (Version None)
Quarter: 2008Q3

REPORT INFORMATION
  Report Type: 
  Country: None (occurrence: None)
  Receive Date: 20080702
  Receipt Date: 20070515
  Transmission Date: 20090109
  Serious: Yes (Hospitalization)
  Sender: FDA-Public Use
  Company Number: 2007-BP-06669BP

PATIENT
  Age: 42 Year
  Sex: Male

DRUGS (7)
  1. MIRAPEX [Suspect]
     Indication: PARKINSON'S DISEASE
     Dosage: 4.5 MG (1.5 MG,TID),PO
     Route: 048
  2. STAVELO (STALEVO) [Concomitant]
  3. SEROQUEL [Concomitant]
  4. COGENTIN [Concomitant]
  5. ATIVAN [Concomitant]
  6. AMANTADINE HCL [Concomitant]
  7. ACETAMINOPHEN [Concomitant]

REACTIONS (2)
  - ABNORMAL BEHAVIOUR [None]
  - DELUSION [None]
